FAERS Safety Report 4548241-7 (Version None)
Quarter: 2005Q1

REPORT INFORMATION
  Report Type: 
  Country: None (occurrence: None)
  Receive Date: 20050105
  Receipt Date: 20050105
  Transmission Date: 20050727
  Serious: Yes (Death)
  Sender: FDA-Public Use
  Company Number: None

PATIENT
  Age: 50 Year
  Sex: Male
  Weight: 74.8435 kg

DRUGS (3)
  1. DESIPRAMIDE HCL [Suspect]
     Indication: DEPRESSION
     Dosage: 50 MG
     Dates: start: 20000504, end: 20000729
  2. WELLBUTRIN [Suspect]
     Indication: DEPRESSION
  3. LAMICTAL [Suspect]
     Indication: DEPRESSION
     Dosage: 100 MG
     Dates: start: 20000504, end: 20000729

REACTIONS (4)
  - AGITATION [None]
  - ANGER [None]
  - FEAR [None]
  - OVERDOSE [None]
